FAERS Safety Report 9648176 (Version 4)
Quarter: 2013Q4

REPORT INFORMATION
  Report Type: Spontaneous
  Country: GB (occurrence: GB)
  Receive Date: 20131028
  Receipt Date: 20131205
  Transmission Date: 20140711
  Serious: Yes (Hospitalization)
  Sender: FDA-Public Use
  Company Number: GB-009507513-1310GBR011667

PATIENT
  Age: 58 Year
  Sex: Female

DRUGS (4)
  1. SITAGLIPTIN PHOSPHATE [Suspect]
     Dosage: 100 MG, UNK
     Route: 048
  2. METFORMIN HYDROCHLORIDE [Suspect]
  3. GLIMEPIRIDE [Suspect]
     Dosage: 6 MG, UNK
  4. FORXIGA [Suspect]

REACTIONS (2)
  - Ketoacidosis [Recovering/Resolving]
  - Blood glucose increased [Recovering/Resolving]
